FAERS Safety Report 23137169 (Version 2)
Quarter: 2023Q4

REPORT INFORMATION
  Report Type: Spontaneous
  Country: US (occurrence: US)
  Receive Date: 20231102
  Receipt Date: 20231124
  Transmission Date: 20240110
  Serious: No
  Sender: FDA-Public Use
  Company Number: US-OPELLA-2023OHG010427

PATIENT
  Age: 68 Year
  Sex: Male

DRUGS (2)
  1. ACT ANTICAVITY FLUORIDE KIDS BUBBLEGUM [Suspect]
     Active Substance: SODIUM FLUORIDE
     Indication: Product used for unknown indication
  2. ACT ANTICAVITY FLUORIDE KIDS WILD WATERMELON [Suspect]
     Active Substance: SODIUM FLUORIDE
     Indication: Product used for unknown indication

REACTIONS (3)
  - Product use issue [Unknown]
  - Product packaging issue [Unknown]
  - No adverse event [Unknown]
